FAERS Safety Report 9597661 (Version 1)
Quarter: 2013Q4

REPORT INFORMATION
  Report Type: Spontaneous
  Country: US (occurrence: US)
  Receive Date: 20131004
  Receipt Date: 20131004
  Transmission Date: 20140711
  Serious: No
  Sender: FDA-Public Use
  Company Number: US-AMGEN-USASP2013019941

PATIENT
  Age: 26 Year
  Sex: Female
  Weight: 92 kg

DRUGS (6)
  1. ENBREL [Suspect]
     Indication: PSORIASIS
     Dosage: 50 MG, QWK
     Route: 058
  2. FLEXERIL                           /00428402/ [Concomitant]
     Dosage: 10 MG, UNK
     Route: 048
  3. ATIVAN [Concomitant]
     Dosage: 1 MG, UNK
     Route: 048
  4. MORPHINE SULFATE [Concomitant]
     Dosage: 100 MG, UNK
     Route: 048
  5. PERCOCET                           /00446701/ [Concomitant]
     Dosage: 10-325 MG
     Route: 048
  6. MULTIVITAMINS, PLAIN [Concomitant]
     Dosage: UNK
     Route: 048

REACTIONS (2)
  - Headache [Unknown]
  - Paraesthesia [Unknown]
